FAERS Safety Report 6766271-1 (Version None)
Quarter: 2010Q2

REPORT INFORMATION
  Report Type: 
  Country: None (occurrence: None)
  Receive Date: 20100611
  Receipt Date: 20100601
  Transmission Date: 20101027
  Serious: Yes (Other)
  Sender: FDA-Public Use
  Company Number: US-JNJFOC-20100400404

PATIENT
  Sex: Male
  Weight: 35.38 kg

DRUGS (3)
  1. REMICADE [Suspect]
     Indication: CROHN'S DISEASE
     Dosage: 2 INFUSIONS
     Route: 042
  2. REMICADE [Suspect]
     Route: 042
  3. PENTASA [Concomitant]
     Indication: CROHN'S DISEASE

REACTIONS (5)
  - DYSPNOEA [None]
  - FLUSHING [None]
  - HYPOTENSION [None]
  - INFUSION RELATED REACTION [None]
  - OXYGEN SATURATION DECREASED [None]
